FAERS Safety Report 13164414 (Version 1)
Quarter: 2017Q1

REPORT INFORMATION
  Report Type: Spontaneous
  Country: US (occurrence: US)
  Receive Date: 20170130
  Receipt Date: 20170130
  Transmission Date: 20170428
  Serious: Yes (Other)
  Sender: FDA-Public Use
  Company Number: US-TEVA-733559USA

PATIENT
  Sex: Female

DRUGS (1)
  1. ALENDRONATE SODIUM. [Suspect]
     Active Substance: ALENDRONATE SODIUM
     Indication: OSTEOARTHRITIS

REACTIONS (9)
  - Arthralgia [Unknown]
  - Pain in extremity [Unknown]
  - Paraesthesia [Unknown]
  - Abasia [Unknown]
  - Myalgia [Unknown]
  - Dyspepsia [Unknown]
  - Muscle spasms [Unknown]
  - Insomnia [Unknown]
  - Dysphagia [Unknown]
